FAERS Safety Report 4477170-2 (Version None)
Quarter: 2004Q4

REPORT INFORMATION
  Report Type: 
  Country: None (occurrence: None)
  Receive Date: 20041018
  Receipt Date: 20040720
  Transmission Date: 20050328
  Serious: Yes (Hospitalization)
  Sender: FDA-Public Use
  Company Number: US-MERCK-0407USA01753

PATIENT
  Age: 44 Year
  Sex: Male
  Weight: 92 kg

DRUGS (20)
  1. PROVENTIL [Concomitant]
     Route: 065
  2. ZIAC [Concomitant]
     Route: 065
  3. RHINOCORT [Concomitant]
     Route: 065
  4. ZYRTEC [Concomitant]
     Route: 065
  5. PANCOF [Concomitant]
     Route: 065
  6. CELEXA [Concomitant]
     Route: 065
     Dates: start: 19990101, end: 20020101
  7. ALLFEN DM [Concomitant]
     Route: 065
  8. PEPCID [Concomitant]
     Route: 048
  9. FOLIC ACID [Concomitant]
     Route: 065
  10. TEQUIN [Concomitant]
     Route: 065
  11. HYZAAR [Concomitant]
     Route: 048
  12. MARCOF EXPECTORANT [Concomitant]
     Route: 065
  13. ATROVENT [Concomitant]
     Route: 065
  14. CLARITIN [Concomitant]
     Route: 065
  15. AVELOX [Concomitant]
     Route: 065
  16. VIOXX [Suspect]
     Indication: ARTHRITIS
     Route: 048
     Dates: start: 19990920, end: 20010423
  17. SEREVENT [Concomitant]
     Route: 065
  18. ULTRAM [Concomitant]
     Route: 065
  19. NASACORT [Concomitant]
     Route: 065
  20. DIOVAN [Concomitant]
     Route: 065
     Dates: start: 20000101

REACTIONS (18)
  - ACUTE MYOCARDIAL INFARCTION [None]
  - ACUTE SINUSITIS [None]
  - ASTHENIA [None]
  - BLOOD CHOLESTEROL INCREASED [None]
  - CARDIAC FAILURE CONGESTIVE [None]
  - CORONARY ARTERY DISEASE [None]
  - CORONARY ARTERY OCCLUSION [None]
  - CRYING [None]
  - DEPRESSION [None]
  - DIZZINESS [None]
  - EMOTIONAL DISTRESS [None]
  - GLUCOSE TOLERANCE IMPAIRED [None]
  - NASOPHARYNGITIS [None]
  - NERVOUSNESS [None]
  - OTITIS MEDIA [None]
  - PAIN [None]
  - PAIN IN EXTREMITY [None]
  - SWELLING [None]
